FAERS Safety Report 10066083 (Version 1)
Quarter: 2014Q2

REPORT INFORMATION
  Report Type: Report from Study
  Country: TH (occurrence: TH)
  Receive Date: 20140408
  Receipt Date: 20140408
  Transmission Date: 20141212
  Serious: Yes (Other)
  Sender: FDA-Public Use
  Company Number: TH-BAXTER-2014BAX016559

PATIENT
  Sex: 0

DRUGS (2)
  1. SEVOFLURANE (INHALATION ANESTHETIC) [Suspect]
     Indication: MAINTENANCE OF ANAESTHESIA
     Dosage: 2 TO 8 %
     Route: 065
  2. FENTANYL [Suspect]
     Indication: ANALGESIC THERAPY
     Dosage: 0.5 TO 1 MCG/KG
     Route: 042

REACTIONS (2)
  - Oxygen saturation decreased [Recovered/Resolved]
  - Aspiration pleural cavity [Recovered/Resolved]
